FAERS Safety Report 8337036 (Version 2)
Quarter: 2013Q1

REPORT INFORMATION
  Report Type: Spontaneous
  Country: US (occurrence: US)
  Receive Date: 20120113
  Receipt Date: 20130301
  Transmission Date: 20140127
  Serious: Yes (Other)
  Sender: FDA-Public Use
  Company Number: US-GENZYME-CERZ-1002361

PATIENT
  Sex: Male
  Weight: 97.5 kg

DRUGS (8)
  1. CEREZYME [Suspect]
     Indication: GAUCHER^S DISEASE
     Dosage: 60 U/KG, Q2W
     Route: 042
     Dates: start: 20110801
  2. CEREZYME [Suspect]
     Dosage: 30 U/KG, Q2W
     Route: 042
     Dates: start: 201110, end: 201201
  3. CEREZYME [Suspect]
     Dosage: UNK
  4. ATRIPLA [Concomitant]
     Indication: HIV INFECTION
     Dosage: UNK
     Route: 065
  5. FUROSEMIDE [Concomitant]
     Indication: OEDEMA
     Dosage: UNK
     Route: 065
  6. SPIRONOLACTONE [Concomitant]
     Indication: PORTAL HYPERTENSION
     Dosage: UNK
     Route: 065
  7. OMEPRAZOLE [Concomitant]
     Indication: PRODUCT USED FOR UNKNOWN INDICATION
     Dosage: UNK
     Route: 065
  8. ZOLPIDEM [Concomitant]
     Indication: INSOMNIA
     Dosage: UNK
     Route: 065

REACTIONS (1)
  - Hepatic cirrhosis [Not Recovered/Not Resolved]
